FAERS Safety Report 5024343-6 (Version None)
Quarter: 2006Q2

REPORT INFORMATION
  Report Type: 
  Country: None (occurrence: None)
  Receive Date: 20060426
  Receipt Date: 20060308
  Transmission Date: 20061013
  Serious: Yes (Other)
  Sender: FDA-Public Use
  Company Number: 2006034364

PATIENT
  Age: 59 Year
  Sex: Female
  Weight: 92.9874 kg

DRUGS (11)
  1. LYRICA [Suspect]
     Indication: NEUROPATHY PERIPHERAL
     Dosage: 450 MG (2 IN 1 D)
     Dates: start: 20060101
  2. MOBIC [Concomitant]
  3. METHOTREXATE [Concomitant]
  4. HUMIRA [Concomitant]
  5. WARFARIN (WARFARIN) [Concomitant]
  6. AMANTADINE HCL [Concomitant]
  7. ACYCLOVIR [Concomitant]
  8. ALL OTHER THERAPEUTIC PRODUCTS (ALL OTHER THERAPEUTIC PRODUCTS) [Concomitant]
  9. ITRACONAZOLE [Concomitant]
  10. DOXYCYCLINE [Concomitant]
  11. LORTAB [Concomitant]

REACTIONS (1)
  - RASH [None]
